FAERS Safety Report 4816886-2 (Version None)
Quarter: 2005Q4

REPORT INFORMATION
  Report Type: 
  Country: None (occurrence: None)
  Receive Date: 20051031
  Receipt Date: 20051031
  Transmission Date: 20060501
  Serious: Yes (Hospitalization)
  Sender: FDA-Public Use
  Company Number: None

PATIENT
  Age: 65 Year
  Sex: Male

DRUGS (8)
  1. BUMETANIDE [Suspect]
     Indication: HYPERTENSION
     Dosage: 4 MG QD
     Dates: start: 20041201
  2. HUMULIN 70/30 [Concomitant]
  3. POTASSIUM CHLORIDE [Concomitant]
  4. METOPROLOL [Concomitant]
  5. VALSARTAN [Concomitant]
  6. ZOCOR [Concomitant]
  7. CLOPIDOGREL BISULFATE [Concomitant]
  8. OMEPRAZOLE [Concomitant]

REACTIONS (1)
  - RENAL FAILURE ACUTE [None]
